FAERS Safety Report 16622686 (Version 1)
Quarter: 2019Q3

REPORT INFORMATION
  Report Type: Spontaneous
  Country: US (occurrence: US)
  Receive Date: 20190723
  Receipt Date: 20190723
  Transmission Date: 20191004
  Serious: No
  Sender: FDA-Public Use
  Company Number: US-OTSUKA-2019_012195

PATIENT
  Age: 50 Year
  Sex: Female

DRUGS (1)
  1. REXULTI [Suspect]
     Active Substance: BREXPIPRAZOLE
     Indication: DEPRESSION
     Dosage: 0.5 MG, UNK
     Route: 065
     Dates: end: 20190405

REACTIONS (2)
  - Parosmia [Recovered/Resolved]
  - Mass [Unknown]

NARRATIVE: CASE EVENT DATE: 201904
